FAERS Safety Report 11467233 (Version 2)
Quarter: 2015Q3

REPORT INFORMATION
  Report Type: Report from Study
  Country: DE (occurrence: DE)
  Receive Date: 20150908
  Receipt Date: 20150925
  Transmission Date: 20151125
  Serious: Yes (Hospitalization)
  Sender: FDA-Public Use
  Company Number: DE-ROCHE-1631430

PATIENT
  Age: 54 Year
  Sex: Female
  Weight: 122 kg

DRUGS (5)
  1. CARBOPLATIN. [Suspect]
     Active Substance: CARBOPLATIN
     Dosage: DOSE: 3 AUC
     Route: 042
     Dates: start: 20150918
  2. BEVACIZUMAB [Suspect]
     Active Substance: BEVACIZUMAB
     Indication: MALIGNANT PERITONEAL NEOPLASM
     Dosage: LAST DOSE PRIOR TO SAE 17/AUG/2015. THERAPY STOPPED ON 07/SEP/2015 AND RESTARTED ON 18/SEP/2015.
     Route: 042
     Dates: start: 20150527
  3. CARBOPLATIN. [Suspect]
     Active Substance: CARBOPLATIN
     Indication: MALIGNANT PERITONEAL NEOPLASM
     Dosage: STARTING DOSE: 4 AUC?LAST DOSE PRIOR TO SAE 17/AUG/2015 ( REDUCED TO 3 AUC).
     Route: 042
     Dates: start: 20150506, end: 20150907
  4. GEMCITABINE [Suspect]
     Active Substance: GEMCITABINE\GEMCITABINE HYDROCHLORIDE
     Indication: MALIGNANT PERITONEAL NEOPLASM
     Dosage: DOSE REDUSED FROM 1000 MG/M2 TO 750 MG/M2 FROM 17/AUG/2015 ONWARDS. LAST DOSE PRIOR TO SAE 24/AUG/20
     Route: 042
     Dates: start: 20150506, end: 20150907
  5. GEMCITABINE [Suspect]
     Active Substance: GEMCITABINE\GEMCITABINE HYDROCHLORIDE
     Route: 042
     Dates: start: 20150918

REACTIONS (1)
  - Pyrexia [Recovered/Resolved]

NARRATIVE: CASE EVENT DATE: 20150902
